FAERS Safety Report 22353820 (Version 1)
Quarter: 2023Q2

REPORT INFORMATION
  Report Type: Spontaneous
  Country: US (occurrence: US)
  Receive Date: 20230523
  Receipt Date: 20230523
  Transmission Date: 20230722
  Serious: No
  Sender: FDA-Public Use
  Company Number: US-drreddys-SPO/USA/23/0164661

PATIENT
  Age: 26 Year

DRUGS (1)
  1. ACCUTANE [Suspect]
     Active Substance: ISOTRETINOIN
     Indication: Product used for unknown indication
     Dosage: RMA ISSUE DATE: 24 FEBRUARY 2023 09:01:58 AM, 29 MARCH 2023 9:25:55 AM

REACTIONS (1)
  - Treatment noncompliance [Unknown]
